FAERS Safety Report 24215498 (Version 1)
Quarter: 2024Q3

REPORT INFORMATION
  Report Type: Spontaneous
  Country: US (occurrence: None)
  Receive Date: 20240816
  Receipt Date: 20240816
  Transmission Date: 20241016
  Serious: No
  Sender: ASTRAZENECA
  Company Number: 2024A179922

PATIENT
  Sex: Male

DRUGS (1)
  1. SEROQUEL [Suspect]
     Active Substance: QUETIAPINE FUMARATE
     Dosage: 100.0MG UNKNOWN
     Route: 048

REACTIONS (6)
  - Middle insomnia [Unknown]
  - Hypoaesthesia [Unknown]
  - Headache [Unknown]
  - Tachyphrenia [Unknown]
  - Stress [Unknown]
  - Product dose omission issue [Unknown]
